FAERS Safety Report 18721881 (Version 1)
Quarter: 2021Q1

REPORT INFORMATION
  Report Type: Spontaneous
  Country: US (occurrence: US)
  Receive Date: 20210111
  Receipt Date: 20210111
  Transmission Date: 20210419
  Serious: Yes (Life-Threatening, Hospitalization, Other)
  Sender: FDA-Public Use
  Company Number: US-ADVANZ PHARMA-201909000425

PATIENT

DRUGS (2)
  1. HYDROXYCHLOROQUINE [Suspect]
     Active Substance: HYDROXYCHLOROQUINE
     Indication: SYSTEMIC LUPUS ERYTHEMATOSUS
     Dosage: 5.3 MG/KG
     Route: 065
  2. HYDROXYCHLOROQUINE [Suspect]
     Active Substance: HYDROXYCHLOROQUINE
     Dosage: 400 MG, QD
     Route: 065

REACTIONS (7)
  - Cardiotoxicity [Unknown]
  - Dilatation atrial [Unknown]
  - Cardiac failure [Unknown]
  - Generalised oedema [Unknown]
  - Ventricular hypokinesia [Unknown]
  - Dyspnoea [Unknown]
  - Cardiomyopathy [Unknown]
